FAERS Safety Report 10659627 (Version 4)
Quarter: 2015Q1

REPORT INFORMATION
  Report Type: Report from Study
  Country: PL (occurrence: PL)
  Receive Date: 20141217
  Receipt Date: 20150115
  Transmission Date: 20150720
  Serious: Yes (Hospitalization)
  Sender: FDA-Public Use
  Company Number: PL-PFIZER INC-2014338225

PATIENT
  Age: 45 Year
  Sex: Male
  Weight: 111 kg

DRUGS (8)
  1. METHOTREXATE [Suspect]
     Active Substance: METHOTREXATE
     Indication: PSORIATIC ARTHROPATHY
     Dosage: 20 MG, PER WEEK
     Route: 048
     Dates: start: 20140316, end: 20141208
  2. PLACEBO [Suspect]
     Active Substance: UNSPECIFIED INGREDIENT
     Indication: PSORIATIC ARTHROPATHY
     Dosage: 2X/DAY
     Route: 048
     Dates: start: 20140827, end: 201411
  3. ACIDUM FOLICUM [Concomitant]
     Active Substance: FOLIC ACID
     Indication: ANAEMIA PROPHYLAXIS
     Dosage: 5 MG, PER WEEK
     Route: 048
     Dates: start: 200707, end: 20141202
  4. PLACEBO [Suspect]
     Active Substance: UNSPECIFIED INGREDIENT
     Indication: PSORIATIC ARTHROPATHY
     Dosage: EVERY 2 WEEKS
     Route: 058
     Dates: start: 20140827, end: 20141203
  5. DORETA [Concomitant]
     Indication: PSORIATIC ARTHROPATHY
     Dosage: 325 MG PARACETAMOL+ 37.5 MG TRAMADOL, MAX 7 TABLETS PER WEEK
     Route: 048
     Dates: start: 2009, end: 20141206
  6. CONTROLOC [Concomitant]
     Active Substance: PANTOPRAZOLE SODIUM
     Indication: PROPHYLAXIS
     Dosage: 20 MG, 1X/DAY
     Route: 048
     Dates: start: 2009, end: 20141206
  7. TOFACITINIB CITRATE [Suspect]
     Active Substance: TOFACITINIB CITRATE
     Indication: PSORIATIC ARTHROPATHY
     Dosage: 5 MG, 2X/DAY
     Route: 048
     Dates: start: 201411, end: 20141206
  8. NIMESIL [Concomitant]
     Active Substance: NIMESULIDE
     Indication: PSORIATIC ARTHROPATHY
     Dosage: 100 MG, MOST RECENT DOSE 200MG PER WEEK (=TWICE IN WEEK=2 TABLETS IN WEEK)
     Route: 048
     Dates: start: 2009, end: 20141206

REACTIONS (1)
  - Appendicitis [Recovered/Resolved]

NARRATIVE: CASE EVENT DATE: 20141206
